FAERS Safety Report 18592361 (Version 14)
Quarter: 2021Q3

REPORT INFORMATION
  Report Type: Report from Study
  Country: JP (occurrence: JP)
  Receive Date: 20201208
  Receipt Date: 20210728
  Transmission Date: 20211014
  Serious: Yes (Hospitalization)
  Sender: FDA-Public Use
  Company Number: JP-EISAI MEDICAL RESEARCH-EC-2020-083756

PATIENT
  Age: 59 Year
  Sex: Male
  Weight: 64.3 kg

DRUGS (23)
  1. LENVATINIB [Suspect]
     Active Substance: LENVATINIB
     Indication: NON-SMALL CELL LUNG CANCER
     Route: 048
     Dates: start: 20200925, end: 20201202
  2. PEMBROLIZUMAB. [Suspect]
     Active Substance: PEMBROLIZUMAB
     Route: 041
     Dates: start: 20201218
  3. MAGNESIUM OXIDE. [Concomitant]
     Active Substance: MAGNESIUM OXIDE
     Dates: start: 20200821
  4. LYRICA [Concomitant]
     Active Substance: PREGABALIN
     Dates: start: 20200814
  5. TENELIA [Concomitant]
     Active Substance: TENELIGLIPTIN
     Dates: start: 20200926
  6. SENNOSIDE A+B [Concomitant]
     Active Substance: SENNOSIDES A AND B
     Dates: start: 20200817
  7. OLOPATADINE HYDROCHLORIDE TOWA [Concomitant]
     Dates: start: 20201016, end: 20201201
  8. BETAMETHASONE BUTYRATE PROPIONATE [Concomitant]
     Active Substance: BETAMETHASONE BUTYRATE PROPIONATE
     Dates: start: 20201009
  9. PEMBROLIZUMAB. [Suspect]
     Active Substance: PEMBROLIZUMAB
     Indication: NON-SMALL CELL LUNG CANCER
     Route: 041
     Dates: start: 20200925, end: 20201016
  10. PEMBROLIZUMAB. [Suspect]
     Active Substance: PEMBROLIZUMAB
     Route: 041
     Dates: start: 20201106, end: 20201106
  11. PARIET [Concomitant]
     Active Substance: RABEPRAZOLE SODIUM
     Dates: start: 20200817
  12. NARURAPID [Concomitant]
     Active Substance: HYDROMORPHONE HYDROCHLORIDE
     Dates: start: 20200901, end: 20201208
  13. SATOLSALBE [Concomitant]
     Dates: start: 20201029
  14. CLOBETASOL PROPIONATE. [Concomitant]
     Active Substance: CLOBETASOL PROPIONATE
     Dates: start: 20201029
  15. CALONAL [Concomitant]
     Active Substance: ACETAMINOPHEN
     Dates: start: 20200811
  16. CELECOX [Concomitant]
     Active Substance: CELECOXIB
     Dates: start: 20200819
  17. LENVATINIB [Suspect]
     Active Substance: LENVATINIB
     Dosage: DOSE REDUCED
     Route: 048
     Dates: start: 20201203
  18. LUNESTA [Concomitant]
     Active Substance: ESZOPICLONE
     Dates: start: 20200814
  19. SYMPROIC [Concomitant]
     Active Substance: NALDEMEDINE
     Dates: start: 20200819
  20. DENOTAS CHEWABLE COMBINATION TABLETS [Concomitant]
     Active Substance: CALCIUM CARBONATE\CHOLECALCIFEROL\MAGNESIUM CARBONATE
     Dates: start: 20200825
  21. NARUSUS [Concomitant]
     Active Substance: HYDROMORPHONE HYDROCHLORIDE
     Dates: start: 20200901, end: 20201201
  22. PEMBROLIZUMAB. [Suspect]
     Active Substance: PEMBROLIZUMAB
     Route: 041
     Dates: start: 20201130, end: 20201130
  23. HEPARINOID [Concomitant]
     Active Substance: CHONDROITIN SULFATE (BOVINE)
     Dates: start: 20201009

REACTIONS (3)
  - Lower gastrointestinal haemorrhage [Recovered/Resolved]
  - Malaise [Recovering/Resolving]
  - Pneumonia [Recovered/Resolved]

NARRATIVE: CASE EVENT DATE: 20201106
